FAERS Safety Report 20105090 (Version 1)
Quarter: 2021Q4

REPORT INFORMATION
  Report Type: Report from Study
  Country: US (occurrence: US)
  Receive Date: 20211124
  Receipt Date: 20211124
  Transmission Date: 20220304
  Serious: Yes (Death)
  Sender: FDA-Public Use
  Company Number: US-BAUSCH-BL-2021-038490

PATIENT
  Age: 54 Year
  Sex: Male

DRUGS (1)
  1. XIFAXAN [Suspect]
     Active Substance: RIFAXIMIN
     Indication: Hepatic cirrhosis
     Route: 048
     Dates: start: 202008

REACTIONS (5)
  - Cardiac arrest [Fatal]
  - Blood pressure decreased [Fatal]
  - Hepatic encephalopathy [Fatal]
  - Hepatic cirrhosis [Fatal]
  - Hepatic failure [Fatal]
